FAERS Safety Report 5067046-4 (Version None)
Quarter: 2006Q3

REPORT INFORMATION
  Report Type: 
  Country: None (occurrence: None)
  Receive Date: 20060727
  Receipt Date: 20060714
  Transmission Date: 20061208
  Serious: Yes (Hospitalization, Other)
  Sender: FDA-Public Use
  Company Number: 2006087866

PATIENT

DRUGS (2)
  1. VIBRATAB             (DOXYCYCLINE) [Suspect]
     Indication: MALARIA
     Dosage: 100 MG, ORAL
     Route: 048
  2. AUGMENTIN '125' [Concomitant]

REACTIONS (1)
  - BRONCHOPULMONARY ASPERGILLOSIS [None]
